FAERS Safety Report 16588484 (Version 1)
Quarter: 2019Q3

REPORT INFORMATION
  Report Type: Spontaneous
  Country: IT (occurrence: IT)
  Receive Date: 20190718
  Receipt Date: 20190718
  Transmission Date: 20191004
  Serious: Yes (Life-Threatening)
  Sender: FDA-Public Use
  Company Number: IT-ACCORD-138763

PATIENT
  Age: 63 Year
  Sex: Female

DRUGS (5)
  1. ONDANSETRON [Concomitant]
     Active Substance: ONDANSETRON
     Dosage: STRENGTH 8 MG
  2. CAPECITABINE ACCORD [Suspect]
     Active Substance: CAPECITABINE
     Indication: COLON CANCER
     Dosage: STRENGTH 500 MG
     Route: 048
     Dates: start: 20190621, end: 20190701
  3. LANSOX [Concomitant]
     Active Substance: LANSOPRAZOLE
     Dosage: STRENGTH 30 MG CAPSULE RIGIDE
  4. DELTACORTENE [Concomitant]
     Active Substance: PREDNISONE
     Dosage: STRENGTH 25 MG
  5. OXALIPLATIN TEVA [Concomitant]
     Active Substance: OXALIPLATIN
     Indication: COLON CANCER
     Dosage: STRENGTH 5 MG / ML

REACTIONS (2)
  - Ventricular tachycardia [Recovered/Resolved]
  - Acute coronary syndrome [Recovered/Resolved]

NARRATIVE: CASE EVENT DATE: 20190628
